FAERS Safety Report 14984586 (Version 2)
Quarter: 2020Q3

REPORT INFORMATION
  Report Type: Spontaneous
  Country: IN (occurrence: AU)
  Receive Date: 20180607
  Receipt Date: 20200706
  Transmission Date: 20201102
  Serious: Yes (Other)
  Sender: FDA-Public Use
  Company Number: AU-ELI_LILLY_AND_COMPANY-AU201805014730

PATIENT

DRUGS (1)
  1. TESTOSTERONE SOLUTION (LY900011) [Suspect]
     Active Substance: TESTOSTERONE
     Indication: PRODUCT USED FOR UNKNOWN INDICATION
     Dosage: UNK, UNKNOWN
     Route: 065

REACTIONS (6)
  - Accidental exposure to product [Unknown]
  - Hair growth abnormal [Unknown]
  - Accidental overdose [Unknown]
  - Blood testosterone increased [Unknown]
  - Epiphyses premature fusion [Unknown]
  - Mood altered [Unknown]
